FAERS Safety Report 9380744 (Version 5)
Quarter: 2013Q3

REPORT INFORMATION
  Report Type: Spontaneous
  Country: US (occurrence: US)
  Receive Date: 20130702
  Receipt Date: 20130808
  Transmission Date: 20140515
  Serious: Yes (Hospitalization, Other)
  Sender: FDA-Public Use
  Company Number: US-PFIZER INC-2013194695

PATIENT
  Age: 73 Year
  Sex: Female
  Weight: 77.1 kg

DRUGS (11)
  1. ENBREL [Suspect]
     Dosage: 50 A SHOT, 1X/DAY (QD)
     Dates: start: 201004, end: 201104
  2. DOXORUBICIN HCL [Suspect]
     Indication: HEPATIC CANCER
     Dosage: UNK
     Dates: start: 201105, end: 201112
  3. CYCLOPHOSPHAMIDE [Suspect]
     Indication: HEPATIC CANCER
     Dosage: UNK
     Dates: start: 201105, end: 201112
  4. PREDNISONE [Suspect]
     Indication: HEPATIC CANCER
     Dosage: UNK
     Dates: start: 201105, end: 201112
  5. KERAFOAM [Suspect]
     Indication: IMPAIRED HEALING
     Dosage: 60 G, 2X/DAY
     Route: 061
     Dates: start: 20101029, end: 2010
  6. KERAFOAM [Suspect]
     Indication: ACNE
  7. VINCRISTINE [Suspect]
     Indication: HEPATIC CANCER
     Dosage: UNK
     Dates: start: 201105, end: 201112
  8. RITUXIMAB [Suspect]
     Indication: HEPATIC CANCER
     Dosage: UNK
     Dates: start: 201105, end: 201112
  9. RETIN A [Concomitant]
     Dosage: UNK
  10. LEVOTHYROXINE [Concomitant]
     Dosage: 0.125 MG, 1X/DAY
     Dates: start: 2004
  11. CRESTOR [Concomitant]
     Dosage: 25 MG, 1X/DAY
     Dates: start: 2001

REACTIONS (13)
  - Hepatic cancer stage IV [Recovered/Resolved]
  - B-cell lymphoma stage IV [Unknown]
  - Renal failure [Unknown]
  - Type 2 diabetes mellitus [Not Recovered/Not Resolved]
  - Kidney infection [Unknown]
  - Dysstasia [Unknown]
  - Neuropathy peripheral [Not Recovered/Not Resolved]
  - Skin lesion [Unknown]
  - Diabetes mellitus inadequate control [Unknown]
  - Off label use [Unknown]
  - Inappropriate schedule of drug administration [Unknown]
  - Skin ulcer [Unknown]
  - Coma [Unknown]
